FAERS Safety Report 4724280-8 (Version None)
Quarter: 2005Q3

REPORT INFORMATION
  Report Type: 
  Country: None (occurrence: None)
  Receive Date: 20050720
  Receipt Date: 20050720
  Transmission Date: 20060218
  Serious: Yes (Hospitalization)
  Sender: FDA-Public Use
  Company Number: None

PATIENT
  Sex: Female

DRUGS (5)
  1. TAXOTERE [Suspect]
     Dosage: 35 MG/M2 IV D1 + D8
     Route: 042
     Dates: start: 20050630
  2. TAXOTERE [Suspect]
     Dosage: 35 MG/M2 IV D1 + D8
     Route: 042
     Dates: start: 20050708
  3. OXALIPLATIN [Suspect]
     Dosage: 50 MG/M2 IV D1 + D8
     Route: 042
     Dates: start: 20050630
  4. OXALIPLATIN [Suspect]
     Dosage: 50 MG/M2 IV D1 + D8
     Route: 042
     Dates: start: 20050708
  5. XELODA [Suspect]
     Dosage: 850 MG/M2 BID D1 - D10
     Dates: start: 20050630, end: 20050711

REACTIONS (8)
  - DEHYDRATION [None]
  - DIARRHOEA [None]
  - FEBRILE NEUTROPENIA [None]
  - NAUSEA [None]
  - NEUTROPENIA [None]
  - ORAL INTAKE REDUCED [None]
  - VOMITING [None]
  - WHITE BLOOD CELL COUNT ABNORMAL [None]
